FAERS Safety Report 9288617 (Version 1)
Quarter: 2013Q2

REPORT INFORMATION
  Report Type: Spontaneous
  Country: US (occurrence: None)
  Receive Date: 20130513
  Receipt Date: 20130513
  Transmission Date: 20140414
  Serious: Yes (Hospitalization)
  Sender: FDA-Public Use
  Company Number: None

PATIENT
  Age: 74 Year
  Sex: Male
  Weight: 66.87 kg

DRUGS (2)
  1. CISPLATIN [Suspect]
     Dates: start: 20100325
  2. PACLITAXEL (TAXOL) [Suspect]
     Dates: start: 20100325

REACTIONS (6)
  - Syncope [None]
  - Orthostatic hypotension [None]
  - Blood potassium decreased [None]
  - Autonomic neuropathy [None]
  - Pyrexia [None]
  - Staphylococcus test positive [None]
